FAERS Safety Report 9051358 (Version 3)
Quarter: 2013Q2

REPORT INFORMATION
  Report Type: Spontaneous
  Country: US (occurrence: US)
  Receive Date: 20130206
  Receipt Date: 20130619
  Transmission Date: 20140414
  Serious: No
  Sender: FDA-Public Use
  Company Number: US-009507513-1302USA002142

PATIENT
  Age: 48 Year
  Sex: Female
  Weight: 90.7 kg

DRUGS (2)
  1. CLARITIN REDITABS [Suspect]
     Indication: EAR DISCOMFORT
     Dosage: 10 MG, ONCE
     Route: 048
     Dates: start: 201206, end: 201206
  2. CLARITIN REDITABS [Suspect]
     Indication: PAIN

REACTIONS (2)
  - Insomnia [Unknown]
  - Drug ineffective [Unknown]
